FAERS Safety Report 15540210 (Version 1)
Quarter: 2018Q4

REPORT INFORMATION
  Report Type: Spontaneous
  Country: JP (occurrence: JP)
  Receive Date: 20181023
  Receipt Date: 20181023
  Transmission Date: 20190205
  Serious: Yes (Hospitalization)
  Sender: FDA-Public Use
  Company Number: JP-ELI_LILLY_AND_COMPANY-JP201803005883

PATIENT
  Sex: Female
  Weight: 43 kg

DRUGS (14)
  1. HYALEIN [Concomitant]
     Active Substance: HYALURONATE SODIUM
     Indication: CATARACT
     Route: 047
  2. DULOXETINE HYDROCHLORIDE. [Suspect]
     Active Substance: DULOXETINE HYDROCHLORIDE
     Indication: OSTEOARTHRITIS
     Dosage: 20 MG, DAILY
     Route: 048
     Dates: start: 20170411, end: 20170414
  3. LYRICA [Concomitant]
     Active Substance: PREGABALIN
     Indication: CERVICAL RADICULOPATHY
     Dosage: 75 MG, BID
     Route: 048
     Dates: start: 20131127
  4. SULPIRIDE [Concomitant]
     Active Substance: SULPIRIDE
     Indication: AUTONOMIC NERVOUS SYSTEM IMBALANCE
     Dosage: 50 MG, DAILY
     Route: 048
  5. RABEPRAZOLE                        /01417202/ [Concomitant]
     Active Substance: RABEPRAZOLE SODIUM
     Indication: GASTROOESOPHAGEAL REFLUX DISEASE
     Dosage: 10 MG, DAILY
     Route: 048
  6. ACTONEL [Concomitant]
     Active Substance: RISEDRONATE SODIUM
     Indication: OSTEOPOROSIS
     Dosage: 75 MG, MONTHLY (1/M)
     Route: 048
     Dates: start: 20160203
  7. MECOBALAMIN [Concomitant]
     Active Substance: METHYLCOBALAMIN
     Indication: CERVICAL RADICULOPATHY
     Dosage: 500 UG, TID
     Route: 048
     Dates: start: 20140122
  8. NEUROTROPIN                        /06251301/ [Concomitant]
     Active Substance: ORYCTOLAGUS CUNICULUS SKIN
     Indication: CERVICAL RADICULOPATHY
     Dosage: 8 DF, BID
     Route: 048
     Dates: start: 20140122
  9. EDIROL [Concomitant]
     Active Substance: ELDECALCITOL
     Indication: OSTEOPOROSIS
     Dosage: 0.75 MG, DAILY
     Route: 048
     Dates: start: 20160203
  10. XYZAL [Concomitant]
     Active Substance: LEVOCETIRIZINE DIHYDROCHLORIDE
     Dosage: 5 MG, DAILY
     Route: 048
  11. LYRICA [Concomitant]
     Active Substance: PREGABALIN
     Indication: NEURALGIA
  12. MECOBALAMIN [Concomitant]
     Active Substance: METHYLCOBALAMIN
     Indication: NEURALGIA
  13. NEUROTROPIN                        /06251301/ [Concomitant]
     Active Substance: ORYCTOLAGUS CUNICULUS SKIN
     Indication: NEURALGIA
  14. DEPAS                              /00749301/ [Concomitant]
     Active Substance: ETIZOLAM
     Indication: AUTONOMIC NERVOUS SYSTEM IMBALANCE
     Dosage: 0.5 MG, DAILY
     Route: 048

REACTIONS (4)
  - Weight decreased [Unknown]
  - Bronchitis [Unknown]
  - Malnutrition [Unknown]
  - Viral infection [Unknown]
